FAERS Safety Report 5922340-7 (Version None)
Quarter: 2008Q4

REPORT INFORMATION
  Report Type: 
  Country: None (occurrence: None)
  Receive Date: 20081017
  Receipt Date: 20081009
  Transmission Date: 20090506
  Serious: Yes (Other)
  Sender: FDA-Public Use
  Company Number: US-TYCO HEALTHCARE/MALLINCKRODT-T200801675

PATIENT

DRUGS (1)
  1. ULTRA-TECHNEKOW [Suspect]
     Indication: MULTIPLE GATED ACQUISITION SCAN
     Dosage: UNK, SINGLE
     Route: 042
     Dates: start: 20071017, end: 20071017

REACTIONS (1)
  - HEPATITIS B [None]
